FAERS Safety Report 18706352 (Version 1)
Quarter: 2021Q1

REPORT INFORMATION
  Report Type: Spontaneous
  Country: US (occurrence: US)
  Receive Date: 20210106
  Receipt Date: 20210106
  Transmission Date: 20210419
  Serious: Yes (Hospitalization)
  Sender: FDA-Public Use
  Company Number: None

PATIENT
  Age: 2 Year
  Sex: Male
  Weight: 12.26 kg

DRUGS (5)
  1. ONCASPAR [Suspect]
     Active Substance: PEGASPARGASE
  2. CYTARABINE 50MG [Suspect]
     Active Substance: CYTARABINE
  3. DEXAMETHASONE 84MG [Suspect]
     Active Substance: DEXAMETHASONE
  4. METHOTREXATE 20MG [Suspect]
     Active Substance: METHOTREXATE
  5. VINCRISTINE 30.2MG [Suspect]
     Active Substance: VINCRISTINE SULFATE

REACTIONS (1)
  - Pain in extremity [None]

NARRATIVE: CASE EVENT DATE: 20201029
